FAERS Safety Report 15833038 (Version 1)
Quarter: 2019Q1

REPORT INFORMATION
  Report Type: Spontaneous
  Country: US (occurrence: US)
  Receive Date: 20190116
  Receipt Date: 20190116
  Transmission Date: 20190417
  Serious: Yes (Life-Threatening)
  Sender: FDA-Public Use
  Company Number: US-C B FLEET CO INC-201901-US-000038

PATIENT
  Sex: Female

DRUGS (1)
  1. DRAMAMINE - N [Suspect]
     Active Substance: MECLIZINE HYDROCHLORIDE
     Indication: PRODUCT USE IN UNAPPROVED INDICATION
     Dosage: UNKNOWN DOSAGE
     Route: 048

REACTIONS (4)
  - Intentional overdose [None]
  - Drug abuse [None]
  - Product use in unapproved indication [None]
  - Seizure [Recovered/Resolved]
